FAERS Safety Report 22166099 (Version 1)
Quarter: 2023Q2

REPORT INFORMATION
  Report Type: Spontaneous
  Country: CH (occurrence: CH)
  Receive Date: 20230403
  Receipt Date: 20230403
  Transmission Date: 20230722
  Serious: Yes (Hospitalization, Other)
  Sender: FDA-Public Use
  Company Number: None

PATIENT
  Age: 42 Year
  Sex: Female

DRUGS (19)
  1. CYTARABINE [Suspect]
     Active Substance: CYTARABINE
     Dosage: 4620 MG, 1X/DAY
     Route: 041
     Dates: start: 20230305, end: 20230306
  2. FLUCONAZOLE [Suspect]
     Active Substance: FLUCONAZOLE
     Dosage: 400 MG, MONTHLY
     Route: 048
     Dates: start: 20230227, end: 20230308
  3. CEFEPIME HYDROCHLORIDE [Suspect]
     Active Substance: CEFEPIME HYDROCHLORIDE
     Dosage: 2000 MG, DAILY
     Route: 041
     Dates: start: 20230303, end: 20230303
  4. CEFEPIME HYDROCHLORIDE [Suspect]
     Active Substance: CEFEPIME HYDROCHLORIDE
     Dosage: 6000 MG
     Route: 041
     Dates: start: 20230304, end: 20230309
  5. ALLOPURINOL [Suspect]
     Active Substance: ALLOPURINOL
     Dosage: 300 MG, 1X/DAY
     Route: 048
     Dates: start: 20230228, end: 20230228
  6. ALLOPURINOL [Suspect]
     Active Substance: ALLOPURINOL
     Dosage: 300 MG, 1X/DAY
     Route: 048
     Dates: start: 20230304, end: 20230305
  7. MYAMBUTOL [Suspect]
     Active Substance: ETHAMBUTOL HYDROCHLORIDE
     Dosage: 800 MG, DAILY
     Route: 048
     Dates: start: 20230304, end: 20230310
  8. MOXIFLOXACIN HYDROCHLORIDE [Suspect]
     Active Substance: MOXIFLOXACIN HYDROCHLORIDE
     Dosage: 400 MG, 1X/DAY
     Route: 048
     Dates: start: 20230304, end: 20230310
  9. DAFALGAN [Suspect]
     Active Substance: ACETAMINOPHEN
     Dosage: AS NECESSARY
     Route: 048
     Dates: start: 20230221
  10. METHOTREXATE (METHOTREXATE SODIUM) [Suspect]
     Active Substance: METHOTREXATE SODIUM
     Dosage: IN TOTAL
     Route: 041
     Dates: start: 20230304, end: 20230304
  11. AMIKIN [Concomitant]
     Active Substance: AMIKACIN SULFATE
     Dosage: 1.6 G, 1X/DAY
     Route: 042
     Dates: start: 20230305, end: 20230305
  12. AMIKIN [Concomitant]
     Active Substance: AMIKACIN SULFATE
     Dosage: 0.8 G, 1X/DAY
     Route: 042
     Dates: start: 20230306, end: 20230308
  13. DEXAMETHASONE [Concomitant]
     Active Substance: DEXAMETHASONE
     Route: 042
     Dates: start: 20230304, end: 20230309
  14. ONDANSETRON [Concomitant]
     Active Substance: ONDANSETRON
     Dosage: UNK
     Route: 042
     Dates: start: 20230304, end: 20230306
  15. AMLODIPINE [Concomitant]
     Active Substance: AMLODIPINE BESYLATE
     Dosage: UNK
     Route: 048
     Dates: start: 20230303, end: 20230307
  16. LORAZEPAM [Concomitant]
     Active Substance: LORAZEPAM
     Dosage: UNK
     Route: 048
     Dates: start: 20230305, end: 20230306
  17. VALTREX [Concomitant]
     Active Substance: VALACYCLOVIR HYDROCHLORIDE
     Dosage: UNK
     Dates: start: 20230227, end: 20230309
  18. ENOXAPARIN SODIUM [Concomitant]
     Active Substance: ENOXAPARIN SODIUM
     Dosage: UNK
     Route: 058
     Dates: start: 20230303
  19. BIKTARVY [Concomitant]
     Active Substance: BICTEGRAVIR SODIUM\EMTRICITABINE\TENOFOVIR ALAFENAMIDE FUMARATE
     Dosage: UNK
     Dates: start: 20230223

REACTIONS (5)
  - Mixed liver injury [Recovering/Resolving]
  - Febrile neutropenia [Recovered/Resolved]
  - Septic shock [Unknown]
  - Myoclonus [Recovered/Resolved]
  - Metabolic encephalopathy [Unknown]

NARRATIVE: CASE EVENT DATE: 20230303
